FAERS Safety Report 8296340-9 (Version None)
Quarter: 2012Q2

REPORT INFORMATION
  Report Type: 
  Country: None (occurrence: None)
  Receive Date: 20120418
  Receipt Date: 20120413
  Transmission Date: 20120825
  Serious: Yes (Other)
  Sender: FDA-Public Use
  Company Number: US-PFIZER INC-2012092798

PATIENT
  Sex: Male
  Weight: 70.295 kg

DRUGS (8)
  1. NEURONTIN [Suspect]
     Indication: NEUROPATHY PERIPHERAL
     Dosage: 300 MG, 3X/DAY
     Dates: start: 20080101
  2. CIALIS [Concomitant]
     Indication: ERECTILE DYSFUNCTION
     Dosage: UNK
  3. FENTANYL [Suspect]
     Indication: FIBROMYALGIA
  4. SOMA [Concomitant]
     Indication: PAIN
     Dosage: 350 MG, 3X/DAY
     Dates: start: 20070101
  5. NEURONTIN [Suspect]
     Indication: FIBROMYALGIA
  6. OXYCODONE HYDROCHLORIDE [Suspect]
     Indication: FIBROMYALGIA
  7. FENTANYL [Suspect]
     Indication: NEUROPATHY PERIPHERAL
     Dosage: 100 UG, EVERY TWO DAYS
     Dates: start: 20070101
  8. OXYCODONE HYDROCHLORIDE [Suspect]
     Indication: NEUROPATHY PERIPHERAL
     Dosage: 60 MG, EVERY 4-6 HOURS
     Dates: start: 20070101

REACTIONS (8)
  - GANGRENE [None]
  - DRUG INEFFECTIVE [None]
  - RESTLESS LEGS SYNDROME [None]
  - LOCALISED INFECTION [None]
  - HYPOAESTHESIA [None]
  - ARTHROPOD STING [None]
  - ANXIETY [None]
  - INSOMNIA [None]
